FAERS Safety Report 25263708 (Version 1)
Quarter: 2025Q2

REPORT INFORMATION
  Report Type: Spontaneous
  Country: FR (occurrence: FR)
  Receive Date: 20250502
  Receipt Date: 20250502
  Transmission Date: 20250717
  Serious: Yes (Hospitalization, Other)
  Sender: CHEPLAPHARM
  Company Number: None

PATIENT
  Age: 14 Year
  Sex: Female
  Weight: 57 kg

DRUGS (5)
  1. OLANZAPINE [Suspect]
     Active Substance: OLANZAPINE
     Indication: Bipolar disorder
     Dosage: 10 MG/DAY?DAILY DOSE: 10 MILLIGRAM
     Route: 048
     Dates: start: 20250122
  2. TERALITHE [Suspect]
     Active Substance: LITHIUM CARBONATE
     Indication: Bipolar disorder
     Dosage: 800 MG/DAY?DAILY DOSE: 800 MILLIGRAM
     Route: 048
     Dates: start: 20240415
  3. VALPROATE [Suspect]
     Active Substance: VALPROIC ACID
     Indication: Bipolar disorder
     Dates: start: 202408
  4. TROPATEPINE [Suspect]
     Active Substance: TROPATEPINE
     Indication: Bipolar disorder
  5. CYAMEMAZINE [Suspect]
     Active Substance: CYAMEMAZINE
     Indication: Bipolar disorder

REACTIONS (5)
  - Cardiomyopathy [Recovering/Resolving]
  - Acute kidney injury [Unknown]
  - Hepatic failure [Unknown]
  - Nephrotic syndrome [Unknown]
  - Viral infection [Unknown]

NARRATIVE: CASE EVENT DATE: 20250131
